FAERS Safety Report 8344728-X (Version None)
Quarter: 2012Q2

REPORT INFORMATION
  Report Type: 
  Country: None (occurrence: None)
  Receive Date: 20120508
  Receipt Date: 20120503
  Transmission Date: 20120825
  Serious: No
  Sender: FDA-Public Use
  Company Number: US-PFIZER INC-2012109737

PATIENT
  Sex: Male
  Weight: 102.4 kg

DRUGS (7)
  1. SYNTHROID [Concomitant]
     Indication: HYPOTHYROIDISM
     Dosage: 100 UG, DAILY
     Route: 048
     Dates: start: 20120401
  2. FLUVOXAMINE [Concomitant]
     Indication: ANXIETY DISORDER
     Dosage: 100MG DAILY
     Route: 048
  3. ALFUZOSIN [Concomitant]
     Indication: HYPERTONIC BLADDER
     Dosage: 10 MG, DAILY (START DATE- FEW MONTHS)
     Route: 048
  4. FLUVOXAMINE [Concomitant]
     Dosage: 150MG DAILY
     Route: 048
  5. CLONAZEPAM [Concomitant]
     Indication: ANXIETY DISORDER
     Dosage: 1MG
  6. ZOLOFT [Suspect]
     Dosage: UNK
     Dates: start: 20110701
  7. FLUVOXAMINE [Concomitant]
     Dosage: 100MG DAILY
     Route: 048

REACTIONS (1)
  - TINNITUS [None]
